FAERS Safety Report 5853961-8 (Version None)
Quarter: 2008Q3

REPORT INFORMATION
  Report Type: 
  Country: None (occurrence: None)
  Receive Date: 20080822
  Receipt Date: 20080815
  Transmission Date: 20090109
  Serious: Yes (Death)
  Sender: FDA-Public Use
  Company Number: B0534026A

PATIENT
  Age: 55 Year
  Sex: Male

DRUGS (4)
  1. ARIXTRA [Suspect]
     Indication: DRUG USE FOR UNKNOWN INDICATION
     Route: 065
     Dates: start: 20080309, end: 20080309
  2. ASPIRIN [Suspect]
     Indication: DRUG USE FOR UNKNOWN INDICATION
     Dosage: 320MG PER DAY
     Route: 048
     Dates: start: 20080309, end: 20080309
  3. PLAVIX [Suspect]
     Indication: DRUG USE FOR UNKNOWN INDICATION
     Route: 048
     Dates: start: 20080309, end: 20080309
  4. B-KOMBIN FORTE [Concomitant]
     Route: 065

REACTIONS (4)
  - ADVERSE DRUG REACTION [None]
  - MUSCLE RIGIDITY [None]
  - PALLOR [None]
  - SUBDURAL HAEMORRHAGE [None]
